FAERS Safety Report 5706918-1 (Version None)
Quarter: 2008Q2

REPORT INFORMATION
  Report Type: 
  Country: None (occurrence: None)
  Receive Date: 20080416
  Receipt Date: 20080407
  Transmission Date: 20081010
  Serious: Yes (Death)
  Sender: FDA-Public Use
  Company Number: JP-GENENTECH-258920

PATIENT
  Age: 55 Year
  Sex: Male

DRUGS (6)
  1. RITUXAN [Suspect]
     Indication: NON-HODGKIN'S LYMPHOMA
     Route: 042
  2. CYCLOSPORINE [Concomitant]
     Indication: PROPHYLAXIS AGAINST TRANSPLANT REJECTION
     Dosage: UNK, UNK
     Dates: start: 20050801
  3. CYCLOPHOSPHAMIDE [Concomitant]
     Indication: PREMEDICATION
     Dosage: UNK, UNK
     Dates: start: 20050101
  4. FLUDARA [Concomitant]
     Indication: PREMEDICATION
     Dosage: UNK, UNK
     Dates: start: 20050101
  5. METHYLPREDNISOLONE [Concomitant]
     Indication: GRAFT VERSUS HOST DISEASE
     Dosage: 2 MG/KG, UNK
  6. MITOXANTRONE [Concomitant]
     Indication: PROPHYLAXIS AGAINST TRANSPLANT REJECTION
     Dosage: UNK, UNK
     Dates: start: 20050801

REACTIONS (9)
  - CHOLECYSTITIS [None]
  - CONDITION AGGRAVATED [None]
  - CYTOGENETIC ABNORMALITY [None]
  - CYTOMEGALOVIRUS ENTEROCOLITIS [None]
  - HERPES ZOSTER [None]
  - LEUKAEMIA [None]
  - MELAENA [None]
  - PNEUMONIA [None]
  - THROMBOTIC MICROANGIOPATHY [None]
